FAERS Safety Report 14422757 (Version 5)
Quarter: 2018Q1

REPORT INFORMATION
  Report Type: Report from Study
  Country: None (occurrence: BE)
  Receive Date: 20180123
  Receipt Date: 20180212
  Transmission Date: 20180509
  Serious: Yes (Hospitalization)
  Sender: FDA-Public Use
  Company Number: BE-ABBVIE-18K-013-2231503-00

PATIENT
  Age: 70 Year
  Sex: Female

DRUGS (3)
  1. DUODOPA [Suspect]
     Active Substance: CARBIDOPA\LEVODOPA
     Indication: PARKINSON^S DISEASE
     Route: 050
     Dates: start: 20180115, end: 20180116
  2. DUODOPA [Suspect]
     Active Substance: CARBIDOPA\LEVODOPA
     Dosage: MD=6 ML?CD=2.9ML/HR DURING 16HRS?ED=1ML
     Route: 050
     Dates: start: 20180126
  3. DUODOPA [Suspect]
     Active Substance: CARBIDOPA\LEVODOPA
     Dosage: MD=7.2 ML?CD=3.1 ML/HR DURING 16HRS?ED=1 ML
     Route: 050
     Dates: start: 20180116, end: 20180126

REACTIONS (3)
  - Muscular weakness [Unknown]
  - Asthenia [Unknown]
  - Gait disturbance [Recovering/Resolving]

NARRATIVE: CASE EVENT DATE: 201802
